FAERS Safety Report 10875137 (Version 1)
Quarter: 2015Q1

REPORT INFORMATION
  Report Type: Spontaneous
  Country: FR (occurrence: FR)
  Receive Date: 20150227
  Receipt Date: 20150227
  Transmission Date: 20150721
  Serious: Yes (Hospitalization, Other)
  Sender: FDA-Public Use
  Company Number: FR-ELI_LILLY_AND_COMPANY-FR201502005846

PATIENT
  Age: 44 Year
  Sex: Male

DRUGS (10)
  1. CYMBALTA [Suspect]
     Active Substance: DULOXETINE HYDROCHLORIDE
     Indication: DEPRESSION
     Dosage: 60 MG, QD
     Route: 048
  2. DEPAMIDE [Suspect]
     Active Substance: VALPROMIDE
     Indication: DEPRESSION
     Dosage: 300 MG, TID
     Route: 048
  3. REMICADE [Concomitant]
     Active Substance: INFLIXIMAB
     Dosage: 300 MG, SINGLE
     Route: 042
     Dates: start: 20141007
  4. RIFINAH [Suspect]
     Active Substance: ISONIAZID\RIFAMPIN
     Indication: PRODUCT USED FOR UNKNOWN INDICATION
     Dosage: 2 DF, QD
     Route: 048
     Dates: start: 20140915, end: 20141128
  5. REMICADE [Concomitant]
     Active Substance: INFLIXIMAB
     Dosage: 300 MG, SINGLE
     Route: 042
     Dates: start: 20140909
  6. TRILEPTAL [Suspect]
     Active Substance: OXCARBAZEPINE
     Indication: DEPRESSION
     Dosage: 400 MG, BID
     Route: 048
     Dates: start: 201408, end: 20141115
  7. REMICADE [Concomitant]
     Active Substance: INFLIXIMAB
     Dosage: 300 MG, SINGLE
     Route: 042
     Dates: start: 20140825
  8. TRILEPTAL [Suspect]
     Active Substance: OXCARBAZEPINE
     Dosage: 450 MG, BID
     Route: 048
     Dates: start: 20141116
  9. CORTANCYL [Suspect]
     Active Substance: PREDNISONE
     Indication: PRODUCT USED FOR UNKNOWN INDICATION
     Dosage: 20 MG, QD
     Route: 048
     Dates: start: 20140927
  10. LYSANXIA [Suspect]
     Active Substance: PRAZEPAM
     Indication: PRODUCT USED FOR UNKNOWN INDICATION
     Dosage: 2 DF, QD
     Route: 048

REACTIONS (5)
  - Suicidal ideation [Unknown]
  - Abnormal behaviour [Unknown]
  - Depression [Recovering/Resolving]
  - Insomnia [Unknown]
  - Tonic clonic movements [Recovering/Resolving]

NARRATIVE: CASE EVENT DATE: 201411
